FAERS Safety Report 10021180 (Version 1)
Quarter: 2014Q1

REPORT INFORMATION
  Report Type: Spontaneous
  Country: US (occurrence: None)
  Receive Date: 20140318
  Receipt Date: 20140318
  Transmission Date: 20141002
  Serious: Yes (Hospitalization)
  Sender: FDA-Public Use
  Company Number: None

PATIENT
  Age: 64 Year
  Sex: Male
  Weight: 58 kg

DRUGS (9)
  1. IBRUTINIB [Suspect]
     Indication: CHRONIC LYMPHOCYTIC LEUKAEMIA
     Route: 048
     Dates: start: 20140226, end: 20140312
  2. LISPRO [Concomitant]
  3. DECADRON [Concomitant]
  4. CEFEPIME [Concomitant]
  5. FLUCONAZOLE [Concomitant]
  6. BACTRIM [Concomitant]
  7. ACYCLOVIR [Concomitant]
  8. NORVASC [Concomitant]
  9. LOVENOX [Concomitant]

REACTIONS (2)
  - Renal failure [None]
  - Pyrexia [None]
